FAERS Safety Report 16624404 (Version 2)
Quarter: 2019Q3

REPORT INFORMATION
  Report Type: Report from Study
  Country: DE (occurrence: DE)
  Receive Date: 20190724
  Receipt Date: 20190726
  Transmission Date: 20191004
  Serious: Yes (Death)
  Sender: FDA-Public Use
  Company Number: PHHO2019DE007601

PATIENT
  Age: 76 Year
  Sex: Female
  Weight: 66 kg

DRUGS (3)
  1. LEE011 [Suspect]
     Active Substance: RIBOCICLIB
     Indication: BREAST CANCER
     Dosage: 600 MG/DAY
     Route: 048
     Dates: start: 20180423, end: 20190605
  2. AVASTIN [Concomitant]
     Active Substance: BEVACIZUMAB
     Indication: PRODUCT USED FOR UNKNOWN INDICATION
     Dosage: 990 MG, Q3W ABSOLUTE
     Route: 042
     Dates: start: 20190614
  3. TAXOL [Concomitant]
     Active Substance: PACLITAXEL
     Indication: PRODUCT USED FOR UNKNOWN INDICATION
     Dosage: 741 MG, QW ABSOLUTE
     Route: 042
     Dates: start: 20190614

REACTIONS (1)
  - Death [Fatal]

NARRATIVE: CASE EVENT DATE: 20190624
